FAERS Safety Report 8009403-X (Version None)
Quarter: 2011Q4

REPORT INFORMATION
  Report Type: 
  Country: None (occurrence: None)
  Receive Date: 20111227
  Receipt Date: 20111222
  Transmission Date: 20120403
  Serious: Yes (Hospitalization, Other)
  Sender: FDA-Public Use
  Company Number: US-ACTELION-A-NJ2011-44962

PATIENT

DRUGS (2)
  1. TRACLEER [Suspect]
     Indication: PULMONARY ARTERIAL HYPERTENSION
     Dosage: UNK
     Route: 048
     Dates: start: 20070119
  2. REVATIO [Concomitant]

REACTIONS (4)
  - STENT PLACEMENT [None]
  - TOE AMPUTATION [None]
  - INFECTION [None]
  - LOCALISED INFECTION [None]
